FAERS Safety Report 13783274 (Version 1)
Quarter: 2017Q3

REPORT INFORMATION
  Report Type: Spontaneous
  Country: GB (occurrence: GB)
  Receive Date: 20170724
  Receipt Date: 20170724
  Transmission Date: 20171127
  Serious: Yes (Other)
  Sender: FDA-Public Use
  Company Number: GB-TEVA-740121ACC

PATIENT
  Age: 58 Year
  Sex: Female
  Weight: 82 kg

DRUGS (22)
  1. SEEBRI BREEZHALER [Concomitant]
     Active Substance: GLYCOPYRROLATE
     Dosage: 1 DOSAGE FORMS DAILY;
     Route: 055
     Dates: start: 20161103
  2. SIMVASTATIN. [Concomitant]
     Active Substance: SIMVASTATIN
     Dosage: 1 DOSAGE FORMS DAILY;
     Dates: start: 20160720
  3. TRAMADOL. [Concomitant]
     Active Substance: TRAMADOL
     Dates: start: 20160822
  4. HYOSCINE BUTYLBROMIDE [Concomitant]
     Active Substance: BUTYLSCOPOLAMINE
     Dates: start: 20161222, end: 20161229
  5. METFORMIN [Concomitant]
     Active Substance: METFORMIN HYDROCHLORIDE
     Dosage: 1 DOSAGE FORMS DAILY;
     Dates: start: 20160822
  6. SALBUTAMOL [Concomitant]
     Active Substance: ALBUTEROL
     Route: 055
     Dates: start: 20160822
  7. DOXYCYCLINE. [Suspect]
     Active Substance: DOXYCYCLINE
     Dates: start: 20161201
  8. COLECALCIFEROL [Concomitant]
     Active Substance: CHOLECALCIFEROL
     Dosage: 2 DOSAGE FORMS DAILY;
     Dates: start: 20160720
  9. CLARITHROMYCIN. [Suspect]
     Active Substance: CLARITHROMYCIN
     Dates: start: 20161201
  10. AMITRIPTYLINE HYDROCHLORIDE. [Concomitant]
     Active Substance: AMITRIPTYLINE HYDROCHLORIDE
     Dosage: 2 DOSAGE FORMS DAILY;
     Dates: start: 20160907
  11. DOXYCYCLINE. [Concomitant]
     Active Substance: DOXYCYCLINE
     Dates: start: 20161125, end: 20161130
  12. MOMETASONE [Concomitant]
     Active Substance: MOMETASONE
     Dosage: 2 DOSAGE FORMS DAILY;
     Dates: start: 20160307
  13. ADCAL [Concomitant]
     Active Substance: CALCIUM CARBONATE
     Dosage: 2 DOSAGE FORMS DAILY;
     Dates: start: 20150918
  14. LANSOPRAZOLE. [Concomitant]
     Active Substance: LANSOPRAZOLE
     Dosage: 1 DOSAGE FORMS DAILY;
     Dates: start: 20160822
  15. TIBOLONE [Concomitant]
     Active Substance: TIBOLONE
     Dosage: 1 DOSAGE FORMS DAILY;
     Dates: start: 20160720
  16. CETIRIZINE [Concomitant]
     Active Substance: CETIRIZINE HYDROCHLORIDE
     Dosage: 1 DOSAGE FORMS DAILY;
     Dates: start: 20160822
  17. HYDROXOCOBALAMIN [Concomitant]
     Active Substance: HYDROXOCOBALAMIN
     Dates: start: 20151217
  18. DUORESP SPIROMAX [Concomitant]
     Active Substance: BUDESONIDE\FORMOTEROL
     Dosage: 2 DOSAGE FORMS DAILY;
     Route: 055
     Dates: start: 20160720
  19. GABAPENTIN. [Concomitant]
     Active Substance: GABAPENTIN
     Dosage: 9 DOSAGE FORMS DAILY;
     Dates: start: 20160720
  20. PREDNISOLONE. [Concomitant]
     Active Substance: PREDNISOLONE
     Indication: ILL-DEFINED DISORDER
     Dates: start: 20160907, end: 20160914
  21. CITALOPRAM [Concomitant]
     Active Substance: CITALOPRAM HYDROBROMIDE
     Dosage: 1 DOSAGE FORMS DAILY;
     Dates: start: 20160822
  22. PARACETAMOL [Concomitant]
     Active Substance: ACETAMINOPHEN
     Indication: ANALGESIC THERAPY
     Dates: start: 20151021

REACTIONS (2)
  - Abdominal pain [Recovered/Resolved]
  - Abdominal discomfort [Recovered/Resolved]

NARRATIVE: CASE EVENT DATE: 20161201
